FAERS Safety Report 9227547 (Version 1)
Quarter: 2013Q2

REPORT INFORMATION
  Report Type: Spontaneous
  Country: US (occurrence: None)
  Receive Date: 20130411
  Receipt Date: 20130411
  Transmission Date: 20140414
  Serious: Yes (Hospitalization)
  Sender: FDA-Public Use
  Company Number: None

PATIENT
  Age: 72 Year
  Sex: Female
  Weight: 90 kg

DRUGS (6)
  1. METHOTREXATE [Suspect]
     Indication: RHEUMATOID ARTHRITIS
     Dosage: 17.5MG Q WEDNESDAY PO ?CHRONIC
     Route: 048
  2. SEPTRA DS [Suspect]
     Indication: CELLULITIS
     Dosage: RECENT 1 TAB BID PO
     Route: 048
  3. VESICARE [Concomitant]
  4. JANUMET [Concomitant]
  5. METOPROLOL [Concomitant]
  6. CEPADROXIL [Concomitant]

REACTIONS (2)
  - Pancytopenia [None]
  - Drug interaction [None]
